FAERS Safety Report 21149628 (Version 3)
Quarter: 2023Q1

REPORT INFORMATION
  Report Type: Spontaneous
  Country: US (occurrence: US)
  Receive Date: 20220729
  Receipt Date: 20230123
  Transmission Date: 20230417
  Serious: No
  Sender: FDA-Public Use
  Company Number: US-NOVOPROD-930082

PATIENT
  Sex: Male

DRUGS (7)
  1. OZEMPIC [Suspect]
     Active Substance: SEMAGLUTIDE
     Indication: Product used for unknown indication
     Dosage: 0.5 MG, QW
     Route: 058
     Dates: start: 202112, end: 202203
  2. CARVEDILOL [Suspect]
     Active Substance: CARVEDILOL
     Dosage: 50 MG, BID
  3. CARVEDILOL [Suspect]
     Active Substance: CARVEDILOL
     Indication: Product used for unknown indication
     Dosage: 25 MG, QD
  4. CARVEDILOL [Suspect]
     Active Substance: CARVEDILOL
     Dosage: 37 MG, QD
  5. CARVEDILOL [Suspect]
     Active Substance: CARVEDILOL
     Dosage: 37 MG, QD
  6. OZEMPIC [Suspect]
     Active Substance: SEMAGLUTIDE
     Indication: Product used for unknown indication
     Dosage: 1 MG
     Dates: start: 202205
  7. NOVOLOG [Concomitant]
     Active Substance: INSULIN ASPART
     Indication: Product used for unknown indication
     Route: 058

REACTIONS (6)
  - Abdominal distension [Recovered/Resolved]
  - Constipation [Recovered/Resolved]
  - Dyspepsia [Recovered/Resolved]
  - Peripheral swelling [Unknown]
  - Hypertension [Unknown]
  - Weight loss poor [Unknown]

NARRATIVE: CASE EVENT DATE: 20220301
